FAERS Safety Report 4675804-0 (Version None)
Quarter: 2005Q2

REPORT INFORMATION
  Report Type: 
  Country: None (occurrence: None)
  Receive Date: 20050527
  Receipt Date: 20050302
  Transmission Date: 20051028
  Serious: No
  Sender: FDA-Public Use
  Company Number: CR-SANOFI-SYNTHELABO-A01200501442

PATIENT
  Sex: Male

DRUGS (2)
  1. XATRAL [Suspect]
     Indication: BENIGN PROSTATIC HYPERPLASIA
     Route: 048
     Dates: start: 20031031, end: 20040720
  2. IRBESARTAN [Concomitant]
     Indication: HYPERTENSION
     Dosage: 1 UNIT
     Route: 048
     Dates: start: 20020101

REACTIONS (1)
  - PSORIASIS [None]
